FAERS Safety Report 9209734 (Version 1)
Quarter: 2013Q1

REPORT INFORMATION
  Report Type: Spontaneous
  Country: US (occurrence: None)
  Receive Date: 20120820
  Receipt Date: 20120820
  Transmission Date: 20140127
  Serious: No
  Sender: FDA-Public Use
  Company Number: 1000030042

PATIENT
  Age: 43 Year
  Sex: Male

DRUGS (9)
  1. VIIBRYD [Suspect]
     Indication: DEPRESSION
     Dosage: 10 MG, 1 IN 1 D
     Route: 048
     Dates: start: 20120421
  2. LISINOPRIL [Concomitant]
  3. ISENTRESS [Concomitant]
  4. SINGULAIR [Concomitant]
  5. OXANDROLONE [Concomitant]
  6. SEROSTIM [Concomitant]
  7. TESTOSTERONE [Concomitant]
  8. LOVAZA [Concomitant]
  9. CEPHALEXIN [Concomitant]

REACTIONS (2)
  - Abdominal discomfort [None]
  - Diarrhoea [None]
